FAERS Safety Report 14187570 (Version 5)
Quarter: 2018Q1

REPORT INFORMATION
  Report Type: Spontaneous
  Country: FR (occurrence: FR)
  Receive Date: 20171114
  Receipt Date: 20180111
  Transmission Date: 20180508
  Serious: Yes (Other)
  Sender: FDA-Public Use
  Company Number: FR-JNJFOC-20170903474

PATIENT
  Age: 46 Year
  Sex: Female
  Weight: 98 kg

DRUGS (3)
  1. CELEBREX [Concomitant]
     Active Substance: CELECOXIB
     Route: 065
  2. IMETH [Concomitant]
     Active Substance: METHOTREXATE SODIUM
     Route: 065
     Dates: start: 201706
  3. SIMPONI [Suspect]
     Active Substance: GOLIMUMAB
     Indication: ANKYLOSING SPONDYLITIS
     Route: 058
     Dates: start: 20160823

REACTIONS (3)
  - Chronic myeloid leukaemia [Unknown]
  - Hysterectomy [Unknown]
  - Spondylitis [Unknown]

NARRATIVE: CASE EVENT DATE: 201708
